FAERS Safety Report 25851940 (Version 1)
Quarter: 2025Q3

REPORT INFORMATION
  Report Type: Spontaneous
  Country: US (occurrence: US)
  Receive Date: 20250926
  Receipt Date: 20250926
  Transmission Date: 20251021
  Serious: Yes (Hospitalization)
  Sender: BRISTOL-MYERS SQUIBB COMPANY
  Company Number: US-BRISTOL-MYERS SQUIBB COMPANY-2025-129464

PATIENT
  Age: 87 Year
  Sex: Female

DRUGS (1)
  1. LENALIDOMIDE [Suspect]
     Active Substance: LENALIDOMIDE
     Indication: Mental status changes
     Dosage: TAKE 1 CAPSULE BY MOUTH DAILY ON DAYS 1-21 OUT OF 28 DAYS

REACTIONS (2)
  - Blood calcium abnormal [Recovering/Resolving]
  - Off label use [Unknown]
